FAERS Safety Report 6143110-3 (Version None)
Quarter: 2009Q2

REPORT INFORMATION
  Report Type: 
  Country: None (occurrence: None)
  Receive Date: 20090403
  Receipt Date: 20090327
  Transmission Date: 20091009
  Serious: Yes (Hospitalization)
  Sender: FDA-Public Use
  Company Number: ES-JNJFOC-20090306719

PATIENT
  Age: 49 Year
  Sex: Female

DRUGS (5)
  1. DURAGESIC-100 [Suspect]
     Indication: PAIN
     Route: 062
  2. EPREX [Suspect]
     Indication: ANAEMIA
     Route: 058
  3. LORNOXICAM [Concomitant]
     Indication: PAIN
     Route: 004
  4. MEGESTROL ACETATE [Concomitant]
     Indication: ANOREXIA
     Route: 065
  5. ACTIQ [Concomitant]
     Indication: PAIN
     Route: 065

REACTIONS (4)
  - ENDOCARDITIS [None]
  - PULMONARY EMBOLISM [None]
  - SEPTIC EMBOLUS [None]
  - SPLENIC EMBOLISM [None]
